FAERS Safety Report 6335386-4 (Version None)
Quarter: 2009Q3

REPORT INFORMATION
  Report Type: 
  Country: None (occurrence: None)
  Receive Date: 20090831
  Receipt Date: 20090817
  Transmission Date: 20100115
  Serious: Yes (Hospitalization)
  Sender: FDA-Public Use
  Company Number: DK-MYLANLABS-2009S1014553

PATIENT
  Age: 75 Year
  Sex: Female

DRUGS (5)
  1. FLUMAZENIL [Suspect]
     Indication: THERAPEUTIC AGENT TOXICITY
     Dosage: 0.4 + 0.3 + 0.3MG WITHIN 1 HOUR
  2. FLUPENTIXOL [Suspect]
     Indication: DRUG USE FOR UNKNOWN INDICATION
  3. WARFARIN SODIUM [Suspect]
     Indication: DRUG USE FOR UNKNOWN INDICATION
  4. TRAMADOL HCL [Suspect]
     Indication: DRUG USE FOR UNKNOWN INDICATION
  5. NALOXONE [Concomitant]
     Dosage: 0.4 + 0.4MG

REACTIONS (5)
  - ALTERED STATE OF CONSCIOUSNESS [None]
  - INTERNATIONAL NORMALISED RATIO INCREASED [None]
  - OVERDOSE [None]
  - STATUS EPILEPTICUS [None]
  - SUICIDE ATTEMPT [None]
